FAERS Safety Report 19195762 (Version 1)
Quarter: 2021Q2

REPORT INFORMATION
  Report Type: Spontaneous
  Country: US (occurrence: US)
  Receive Date: 20210429
  Receipt Date: 20210429
  Transmission Date: 20210717
  Serious: No
  Sender: FDA-Public Use
  Company Number: US-ABBVIE-20K-163-3494425-00

PATIENT
  Age: 69 Year
  Sex: Male
  Weight: 116.68 kg

DRUGS (2)
  1. ANDROGEL [Suspect]
     Active Substance: TESTOSTERONE
     Indication: BLOOD TESTOSTERONE DECREASED
     Dosage: 16.2 MG/G
     Route: 061
     Dates: start: 1995, end: 1996
  2. ANDROGEL [Suspect]
     Active Substance: TESTOSTERONE
     Dosage: 16.2 MG/G
     Route: 061
     Dates: start: 202007

REACTIONS (6)
  - Aggression [Recovered/Resolved]
  - Drug ineffective [Not Recovered/Not Resolved]
  - Weight increased [Not Recovered/Not Resolved]
  - Asthenia [Not Recovered/Not Resolved]
  - Fatigue [Not Recovered/Not Resolved]
  - Depression [Not Recovered/Not Resolved]

NARRATIVE: CASE EVENT DATE: 202007
